FAERS Safety Report 7476004-1 (Version None)
Quarter: 2011Q2

REPORT INFORMATION
  Report Type: 
  Country: None (occurrence: None)
  Receive Date: 20110512
  Receipt Date: 20110505
  Transmission Date: 20111010
  Serious: Yes (Death, Hospitalization)
  Sender: FDA-Public Use
  Company Number: IT-CELGENEUS-083-DEXAM-10123123

PATIENT
  Sex: Female
  Weight: 92 kg

DRUGS (3)
  1. DEXAMETHASONE [Suspect]
     Dosage: 40 MILLIGRAM
     Route: 048
     Dates: start: 20101011, end: 20101021
  2. REVLIMID [Suspect]
     Indication: MULTIPLE MYELOMA
     Dosage: 10 MILLIGRAM
     Route: 048
     Dates: start: 20100518, end: 20100924
  3. DEXAMETHASONE [Suspect]
     Indication: MULTIPLE MYELOMA
     Dosage: 1214 MILLILITER
     Route: 065
     Dates: end: 20100924

REACTIONS (2)
  - OEDEMA PERIPHERAL [None]
  - SEPSIS [None]
